FAERS Safety Report 7669826-5 (Version None)
Quarter: 2011Q3

REPORT INFORMATION
  Report Type: 
  Country: None (occurrence: None)
  Receive Date: 20110808
  Receipt Date: 20110727
  Transmission Date: 20111222
  Serious: Yes (Hospitalization)
  Sender: FDA-Public Use
  Company Number: JP-NOVOPROD-332806

PATIENT

DRUGS (1)
  1. NOVOLIN R [Suspect]
     Indication: SUICIDE ATTEMPT
     Dosage: 600 U, QD
     Route: 058
     Dates: start: 20110103, end: 20110103

REACTIONS (3)
  - SUICIDE ATTEMPT [None]
  - HYPOGLYCAEMIC ENCEPHALOPATHY [None]
  - INTENTIONAL OVERDOSE [None]
